FAERS Safety Report 9118224 (Version 1)
Quarter: 2013Q1

REPORT INFORMATION
  Report Type: Spontaneous
  Country: US (occurrence: US)
  Receive Date: 20130128
  Receipt Date: 20130128
  Transmission Date: 20140127
  Serious: No
  Sender: FDA-Public Use
  Company Number: US-PFIZER INC-2013032569

PATIENT
  Age: 66 Year
  Sex: Female
  Weight: 72.56 kg

DRUGS (7)
  1. LYRICA [Suspect]
     Indication: FIBROMYALGIA
     Dosage: 75 MG, 2X/DAY
     Dates: start: 201301, end: 201301
  2. LYRICA [Interacting]
     Dosage: 75 MG, DAILY
     Dates: start: 201301
  3. EFFEXOR XR [Interacting]
     Dosage: UNK
  4. AMBIEN [Interacting]
     Dosage: UNK
  5. SEROQUEL [Interacting]
     Dosage: 75 MG, UNK
  6. DILTIAZEM [Concomitant]
     Indication: BLOOD PRESSURE ABNORMAL
     Dosage: 240 MG, DAILY
  7. DEXLANSOPRAZOLE [Concomitant]
     Indication: GASTROOESOPHAGEAL REFLUX DISEASE
     Dosage: 60 MG, DAILY

REACTIONS (4)
  - Dizziness [Recovered/Resolved]
  - Somnolence [Unknown]
  - Drug interaction [Unknown]
  - Intentional drug misuse [Unknown]
